FAERS Safety Report 11418702 (Version 1)
Quarter: 2015Q3

REPORT INFORMATION
  Report Type: Spontaneous
  Country: BR (occurrence: BR)
  Receive Date: 20150826
  Receipt Date: 20150826
  Transmission Date: 20151125
  Serious: Yes (Hospitalization, Other)
  Sender: FDA-Public Use
  Company Number: BR-ACCORD-033168

PATIENT
  Age: 33 Year
  Sex: Male
  Weight: 72.05 kg

DRUGS (10)
  1. CISPLATIN. [Suspect]
     Active Substance: CISPLATIN
     Indication: TESTIS CANCER
     Dosage: 20 MG/M^2?(D1,D2,D3,D4,D5)
     Route: 042
     Dates: start: 20150706
  2. ETOPOSIDE. [Suspect]
     Active Substance: ETOPOSIDE
     Indication: TESTIS CANCER
     Route: 042
     Dates: start: 20150706
  3. BLEOMYCIN [Suspect]
     Active Substance: BLEOMYCIN SULFATE
     Indication: TESTIS CANCER
     Dosage: 30 UI (D2,D9,D16)
     Route: 042
     Dates: start: 20150707
  4. METOCLOPRAMIDE. [Concomitant]
     Active Substance: METOCLOPRAMIDE
     Dosage: 10MG/8/8/ HOURS
  5. DIPIRONA [Concomitant]
     Active Substance: METAMIZOLE
     Dosage: 500 MG/6/6 HOURS
  6. OMEPRAZOLE. [Concomitant]
     Active Substance: OMEPRAZOLE
  7. BROMOPRIDE [Concomitant]
     Active Substance: BROMOPRIDE
  8. ONDANSETRON/ONDANSETRON HYDROCHLORIDE [Concomitant]
     Indication: PREMEDICATION
     Route: 042
  9. METHADONE/METHADONE HYDROCHLORIDE [Concomitant]
     Dosage: 10MG/12/12 HOURS
  10. DEXAMETHASONE. [Concomitant]
     Active Substance: DEXAMETHASONE
     Indication: PREMEDICATION
     Route: 042

REACTIONS (12)
  - Anaemia [Recovering/Resolving]
  - Electrolyte imbalance [Recovering/Resolving]
  - Blood uric acid increased [Recovering/Resolving]
  - Neutropenia [Recovering/Resolving]
  - Duodenitis [Recovering/Resolving]
  - Mucosal inflammation [Recovering/Resolving]
  - Gastritis [Recovering/Resolving]
  - Leukopenia [Recovering/Resolving]
  - Hypotension [Recovering/Resolving]
  - Thrombocytopenia [Recovering/Resolving]
  - Oesophagitis [Recovering/Resolving]
  - Extravasation [Recovering/Resolving]

NARRATIVE: CASE EVENT DATE: 20150715
